FAERS Safety Report 16731459 (Version 1)
Quarter: 2019Q3

REPORT INFORMATION
  Report Type: Spontaneous
  Country: US (occurrence: US)
  Receive Date: 20190822
  Receipt Date: 20190822
  Transmission Date: 20191005
  Serious: No
  Sender: FDA-Public Use
  Company Number: US-AKRON, INC.-2073530

PATIENT
  Sex: Male

DRUGS (1)
  1. LACTULOSE SYRUP ORAL/RECTAL [Suspect]
     Active Substance: LACTULOSE

REACTIONS (1)
  - Diarrhoea [Unknown]
